FAERS Safety Report 6698509-3 (Version None)
Quarter: 2010Q2

REPORT INFORMATION
  Report Type: 
  Country: None (occurrence: None)
  Receive Date: 20100427
  Receipt Date: 20100419
  Transmission Date: 20101027
  Serious: Yes (Life-Threatening)
  Sender: FDA-Public Use
  Company Number: JP-ASTRAZENECA-2010SE14647

PATIENT
  Age: 27823 Day
  Sex: Male

DRUGS (20)
  1. MEROPEN [Suspect]
     Dates: start: 20100305, end: 20100308
  2. TARGOCID [Suspect]
     Dates: start: 20100303, end: 20100304
  3. TARGOCID [Suspect]
     Dates: start: 20100305, end: 20100306
  4. TARGOCID [Suspect]
     Dates: start: 20100307, end: 20100308
  5. PROPOFOL [Concomitant]
     Route: 042
     Dates: start: 20100305
  6. UNASYN [Concomitant]
     Dates: start: 20100217, end: 20100220
  7. CEFTAZIDIME [Concomitant]
     Dates: start: 20100217, end: 20100226
  8. FIRSTCIN [Concomitant]
     Dates: start: 20100227, end: 20100303
  9. FUROSEMIDE [Concomitant]
     Dates: start: 20100223
  10. GLOVENIN [Concomitant]
  11. ELASPOL [Concomitant]
     Dates: start: 20100305
  12. RANITIDINE [Concomitant]
     Dates: start: 20100305, end: 20100308
  13. PANTHENOL [Concomitant]
     Dates: start: 20100305
  14. INSULIN HUMAN (GENETICAL RECOMBINATION) [Concomitant]
     Dates: start: 20100305
  15. ALBUMIN (HUMAN) [Concomitant]
     Route: 042
     Dates: start: 20100306, end: 20100308
  16. DIAZEPAM [Concomitant]
     Dates: start: 20100305
  17. CALCIUM GLUCONATE [Concomitant]
     Route: 042
     Dates: start: 20100308
  18. LANSOPRAZOLE [Concomitant]
     Route: 042
     Dates: start: 20100308
  19. VECURONIUM BROMIDE [Concomitant]
     Route: 042
     Dates: start: 20100308
  20. METHYLPREDNISOLONE SODIUM SUCCINATE [Concomitant]
     Route: 042
     Dates: start: 20100308

REACTIONS (2)
  - ANURIA [None]
  - RENAL FAILURE ACUTE [None]
